FAERS Safety Report 8506335-5 (Version None)
Quarter: 2012Q3

REPORT INFORMATION
  Report Type: 
  Country: None (occurrence: None)
  Receive Date: 20120712
  Receipt Date: 20120629
  Transmission Date: 20120928
  Serious: No
  Sender: FDA-Public Use
  Company Number: US-ASTRAZENECA-2012SE44910

PATIENT
  Age: 47 Year
  Sex: Female

DRUGS (1)
  1. QUETIAPINE [Suspect]
     Indication: ANXIETY
     Route: 048

REACTIONS (4)
  - HYPERHIDROSIS [None]
  - DRUG INEFFECTIVE [None]
  - PERFORMANCE STATUS DECREASED [None]
  - SEDATION [None]
